FAERS Safety Report 8452165-2 (Version None)
Quarter: 2012Q2

REPORT INFORMATION
  Report Type: 
  Country: None (occurrence: None)
  Receive Date: 20120620
  Receipt Date: 20120615
  Transmission Date: 20120825
  Serious: Yes (Hospitalization)
  Sender: FDA-Public Use
  Company Number: JP-GLAXOSMITHKLINE-B0801469A

PATIENT
  Sex: Male

DRUGS (5)
  1. DEPAKENE [Concomitant]
     Dosage: 600MG PER DAY
     Route: 048
  2. LEXIN [Concomitant]
     Dosage: 600MG PER DAY
     Route: 048
  3. PAXIL [Suspect]
     Indication: DEPRESSION
     Dosage: 10MG PER DAY
     Route: 048
     Dates: end: 20120101
  4. CLONAZEPAM [Concomitant]
     Dosage: 10MG PER DAY
     Route: 048
  5. SUMATRIPTAN SUCCINATE [Suspect]
     Indication: MIGRAINE
     Route: 058
     Dates: start: 20110708, end: 20120511

REACTIONS (11)
  - SEROTONIN SYNDROME [None]
  - HAEMATOCRIT DECREASED [None]
  - HYPERHIDROSIS [None]
  - BLOOD CHLORIDE DECREASED [None]
  - HAEMOGLOBIN DECREASED [None]
  - GAMMA-GLUTAMYLTRANSFERASE INCREASED [None]
  - BLOOD LACTATE DEHYDROGENASE INCREASED [None]
  - RED BLOOD CELL COUNT DECREASED [None]
  - ASTHENIA [None]
  - DYSSTASIA [None]
  - BLOOD SODIUM DECREASED [None]
